FAERS Safety Report 5537429-4 (Version None)
Quarter: 2007Q4

REPORT INFORMATION
  Report Type: 
  Country: None (occurrence: None)
  Receive Date: 20071207
  Receipt Date: 20071127
  Transmission Date: 20080405
  Serious: Yes (Other)
  Sender: FDA-Public Use
  Company Number: GB-ROCHE-533900

PATIENT
  Age: 38 Year
  Sex: Male

DRUGS (4)
  1. MYCOPHENOLATE MOFETIL [Suspect]
     Indication: DRUG USE FOR UNKNOWN INDICATION
     Route: 065
  2. ANTITHYMOCYTE GLOBULIN [Suspect]
     Indication: DRUG USE FOR UNKNOWN INDICATION
     Dosage: REPORTED AS ANTITHYMOCYTE IMMUNOGLOBULIN UNSPECIFIED
     Route: 065
  3. PREDNISOLONE [Suspect]
     Indication: RENAL AND PANCREAS TRANSPLANT
     Route: 065
  4. TACROLIMUS [Suspect]
     Indication: DRUG USE FOR UNKNOWN INDICATION
     Route: 065

REACTIONS (1)
  - CARPAL TUNNEL SYNDROME [None]
